FAERS Safety Report 7620520-6 (Version None)
Quarter: 2011Q3

REPORT INFORMATION
  Report Type: 
  Country: None (occurrence: None)
  Receive Date: 20110719
  Receipt Date: 20110705
  Transmission Date: 20111222
  Serious: Yes (Hospitalization)
  Sender: FDA-Public Use
  Company Number: JP-ROCHE-719847

PATIENT
  Sex: Female

DRUGS (31)
  1. GRANISETRON HYDROCHLORIDE [Suspect]
     Indication: PREMEDICATION
     Dosage: DRUG NAME:KYTRIL(GRANISETRON)
     Route: 048
     Dates: start: 20100616, end: 20100711
  2. TAXOTERE [Suspect]
     Route: 041
     Dates: start: 20100818
  3. DECADRON [Suspect]
     Indication: PREMEDICATION
     Dosage: DRUG NAME:DECADRON(DEXAMETHASONE SODIUM PHOSPHATE)
     Route: 041
     Dates: start: 20100616
  4. PYDOXAL [Suspect]
     Indication: PROPHYLAXIS
     Route: 048
     Dates: start: 20100616
  5. CAPECITABINE [Concomitant]
     Route: 048
     Dates: start: 20110507, end: 20110511
  6. XELODA [Concomitant]
     Route: 048
     Dates: start: 20110317, end: 20110317
  7. XELODA [Concomitant]
     Route: 048
     Dates: start: 20110318, end: 20110330
  8. DECADRON [Suspect]
     Route: 048
     Dates: start: 20100616, end: 20100711
  9. ZOMETA [Suspect]
     Indication: METASTASES TO BONE
     Dosage: DRUG NAME: ZOMETA(ZOLEDRONIC ACID HYDRATE)
     Route: 041
     Dates: start: 20100616
  10. CAPECITABINE [Concomitant]
     Route: 048
     Dates: start: 20110316, end: 20110316
  11. CAPECITABINE [Concomitant]
     Route: 048
     Dates: start: 20110427, end: 20110506
  12. XELODA [Concomitant]
     Route: 048
     Dates: start: 20110406, end: 20110419
  13. XELODA [Concomitant]
     Route: 048
     Dates: start: 20110427, end: 20110506
  14. CAPECITABINE [Concomitant]
     Route: 048
     Dates: start: 20110420, end: 20110420
  15. TAXOTERE [Suspect]
     Indication: BREAST CANCER RECURRENT
     Dosage: DRUG NAME:TAXOTERE(DOCETAXEL HYDRATE),
     Route: 041
     Dates: start: 20100616
  16. CHLORPHENIRAMINE MALEATE [Suspect]
     Indication: PREMEDICATION
     Dosage: DRUG NAME: POLARAMINE(CHLORPHENIRAMINE MALEATE)
     Route: 041
     Dates: start: 20100616
  17. CAPECITABINE [Concomitant]
     Route: 048
     Dates: start: 20110225, end: 20110308
  18. CAPECITABINE [Concomitant]
     Route: 048
     Dates: start: 20110317, end: 20110317
  19. XELODA [Concomitant]
     Route: 048
     Dates: start: 20110223, end: 20110224
  20. XELODA [Concomitant]
     Route: 048
     Dates: start: 20110225, end: 20110308
  21. GRANISETRON HYDROCHLORIDE [Suspect]
     Indication: PROPHYLAXIS OF NAUSEA AND VOMITING
     Dosage: DRUG NAME: KYTRIL 3MG BAG(GRANISETRON)
     Route: 041
     Dates: start: 20100616, end: 20110202
  22. CAPECITABINE [Concomitant]
     Route: 048
     Dates: start: 20110223, end: 20110224
  23. CAPECITABINE [Concomitant]
     Route: 048
     Dates: start: 20110318, end: 20110330
  24. CAPECITABINE [Concomitant]
     Route: 048
     Dates: start: 20110419, end: 20110419
  25. XELODA [Concomitant]
     Route: 048
     Dates: start: 20110419, end: 20110419
  26. XELODA [Concomitant]
     Route: 048
     Dates: start: 20110420, end: 20110420
  27. FAMOTIDINE [Suspect]
     Indication: PREMEDICATION
     Route: 041
     Dates: start: 20100616
  28. NAUZELIN [Suspect]
     Indication: PREMEDICATION
     Route: 048
     Dates: start: 20100616, end: 20100711
  29. CAPECITABINE [Concomitant]
     Route: 048
     Dates: start: 20110406, end: 20110419
  30. XELODA [Concomitant]
     Route: 048
     Dates: start: 20110316, end: 20110316
  31. XELODA [Concomitant]
     Route: 048
     Dates: start: 20110507

REACTIONS (11)
  - PULMONARY ARTERY THROMBOSIS [None]
  - PALMAR-PLANTAR ERYTHRODYSAESTHESIA SYNDROME [None]
  - STOMATITIS [None]
  - INJECTION SITE EXTRAVASATION [None]
  - VOMITING [None]
  - NEUTROPHIL COUNT DECREASED [None]
  - FATIGUE [None]
  - ALOPECIA [None]
  - MALAISE [None]
  - NAUSEA [None]
  - DECREASED APPETITE [None]
